FAERS Safety Report 4961879-8 (Version None)
Quarter: 2006Q1

REPORT INFORMATION
  Report Type: 
  Country: None (occurrence: None)
  Receive Date: 20060329
  Receipt Date: 20060321
  Transmission Date: 20060701
  Serious: Yes (Hospitalization)
  Sender: FDA-Public Use
  Company Number: TPA2006A00480

PATIENT
  Age: 49 Year
  Sex: Female
  Weight: 97.0698 kg

DRUGS (16)
  1. ACTOS [Suspect]
     Indication: DIABETES MELLITUS NON-INSULIN-DEPENDENT
     Dosage: 30 MG, 1 IN 1 D, PER ORAL
     Route: 048
     Dates: start: 20050921
  2. PAXIL [Suspect]
     Indication: DEPRESSION
     Dosage: 40 MG, 1 IN 1 D, PER ORAL
     Route: 048
  3. METHADONE [Concomitant]
  4. LYRICA [Concomitant]
  5. GLIPIZIDE [Concomitant]
  6. METFORMIN [Concomitant]
  7. LEVOTHYROXINE SODIUM [Concomitant]
  8. PREVACID [Concomitant]
  9. CYTOMEL [Concomitant]
  10. FUROSEMIDE [Concomitant]
  11. SINGULAIR [Concomitant]
  12. LOVASTATIN [Concomitant]
  13. ZYRTEC [Concomitant]
  14. ASPIRIN [Concomitant]
  15. ADVAIR DISKUS 100/50 [Concomitant]
  16. NASONEX [Concomitant]

REACTIONS (7)
  - CONDITION AGGRAVATED [None]
  - DENTAL CARIES [None]
  - DEPRESSION [None]
  - DRUG INEFFECTIVE [None]
  - DRY MOUTH [None]
  - TOOTH FRACTURE [None]
  - UPPER RESPIRATORY TRACT INFECTION [None]
